FAERS Safety Report 4411623-8 (Version None)
Quarter: 2004Q3

REPORT INFORMATION
  Report Type: 
  Country: None (occurrence: None)
  Receive Date: 20040728
  Receipt Date: 20040728
  Transmission Date: 20050211
  Serious: Yes (Hospitalization)
  Sender: FDA-Public Use
  Company Number: None

PATIENT
  Age: 59 Year
  Sex: Male
  Weight: 77.6 kg

DRUGS (12)
  1. SIMVASTATIN [Suspect]
     Indication: HYPERLIPIDAEMIA
     Dosage: 40 MG + 1 40 MG DAI ORAL
     Route: 048
     Dates: end: 20031203
  2. RANITIDINE HCL [Concomitant]
  3. FUROSEMIDE [Concomitant]
  4. GEMFIBROZIL [Concomitant]
  5. LISINOPRIL [Concomitant]
  6. AMITRIPTYLINE HCL [Concomitant]
  7. TERAZOSIN HCL [Concomitant]
  8. ISOSORBIDE MONONITRATE [Concomitant]
  9. INSULIN NOVO/IN 70/30 [Concomitant]
  10. HUMULIN N [Concomitant]
  11. HUMULIN R [Concomitant]
  12. SIMVASTATIN [Concomitant]

REACTIONS (2)
  - RENAL FAILURE ACUTE [None]
  - RHABDOMYOLYSIS [None]
